FAERS Safety Report 24685132 (Version 1)
Quarter: 2024Q4

REPORT INFORMATION
  Report Type: Other
  Country: CA (occurrence: CA)
  Receive Date: 20241202
  Receipt Date: 20241202
  Transmission Date: 20250115
  Serious: Yes (Other)
  Sender: APOTEX
  Company Number: CA-APOTEX-2024AP018572

PATIENT
  Age: 67 Year
  Sex: Male
  Weight: 58 kg

DRUGS (1)
  1. IMATINIB [Suspect]
     Active Substance: IMATINIB
     Indication: Gastrointestinal stromal tumour
     Dosage: 400 MILLIGRAM, QD
     Route: 048

REACTIONS (3)
  - Mucosal inflammation [Recovering/Resolving]
  - Oedema [Recovering/Resolving]
  - Rash [Recovering/Resolving]
